FAERS Safety Report 8416113-3 (Version None)
Quarter: 2012Q2

REPORT INFORMATION
  Report Type: 
  Country: None (occurrence: None)
  Receive Date: 20120323
  Receipt Date: 20111220
  Transmission Date: 20120825
  Serious: Yes (Other)
  Sender: FDA-Public Use
  Company Number: 163-21880-11123006

PATIENT
  Age: 77 Year
  Sex: Male
  Weight: 88.4514 kg

DRUGS (17)
  1. FINASTERIDE [Concomitant]
  2. XOPENEX HFA (LEVOSALBUTAMOL TARTRATE) [Concomitant]
  3. AMLODIPINE BESYLATE [Concomitant]
  4. FUROSEMIDE [Concomitant]
  5. LEVEMIR [Concomitant]
  6. KLOR-CON M10 (POTASSIUM CHLORIDE) [Concomitant]
  7. ASPIRIN [Concomitant]
  8. METOPROLOL-HCTZ (SELOKEN COMP.) [Concomitant]
  9. MULTI-VITAMINS [Concomitant]
  10. QUINAPRIL-HCTZ (ACUILIX) [Concomitant]
  11. FOLIC ACID [Concomitant]
  12. TERAZOSIN HCL [Concomitant]
  13. REVLIMID [Suspect]
     Indication: MYELODYSPLASTIC SYNDROME
     Dosage: 10 MG, 1 IN 1 D, PO
     Route: 048
     Dates: start: 20111101, end: 20111213
  14. VITAMIN D [Concomitant]
  15. NATEGLINIDE [Concomitant]
  16. SIMVASTATIN [Concomitant]
  17. COLCHICINE [Concomitant]

REACTIONS (1)
  - SWELLING FACE [None]
